FAERS Safety Report 10485674 (Version 2)
Quarter: 2014Q4

REPORT INFORMATION
  Report Type: Spontaneous
  Country: US (occurrence: US)
  Receive Date: 20141001
  Receipt Date: 20141001
  Transmission Date: 20150528
  Serious: Yes (Other)
  Sender: FDA-Public Use
  Company Number: US-AUROBINDO-AUR-APL-2014-09078

PATIENT
  Age: 75 Year
  Sex: Female

DRUGS (3)
  1. AMLODIPINE [Suspect]
     Active Substance: AMLODIPINE BESYLATE
     Dosage: 5 MG, ONCE A DAY
     Route: 048
     Dates: start: 20140806
  2. AMLODIPINE [Suspect]
     Active Substance: AMLODIPINE BESYLATE
     Indication: HYPERTENSION
     Dosage: 2.5 MG, ONCE A DAY
     Route: 048
     Dates: start: 201301, end: 20140805
  3. LISINOPRIL. [Suspect]
     Active Substance: LISINOPRIL
     Indication: HYPERTENSION
     Dosage: 20 MG, UNK
     Route: 065

REACTIONS (7)
  - Bone pain [Unknown]
  - Myalgia [Unknown]
  - Blood pressure inadequately controlled [Unknown]
  - Paraesthesia [Unknown]
  - Discomfort [Unknown]
  - Blood calcium increased [Unknown]
  - Parathyroid tumour [Unknown]

NARRATIVE: CASE EVENT DATE: 201408
